FAERS Safety Report 6962468-6 (Version None)
Quarter: 2010Q3

REPORT INFORMATION
  Report Type: 
  Country: None (occurrence: None)
  Receive Date: 20100902
  Receipt Date: 20100821
  Transmission Date: 20110219
  Serious: Yes (Other)
  Sender: FDA-Public Use
  Company Number: US-PFIZER INC-2010106099

PATIENT
  Sex: Female
  Weight: 108 kg

DRUGS (6)
  1. CHANTIX [Suspect]
     Indication: SMOKING CESSATION THERAPY
     Dosage: 0.5 MG, DAILY
     Route: 048
     Dates: start: 20100819
  2. PRILOSEC [Concomitant]
     Dosage: UNK
  3. CIMETIDINE [Concomitant]
     Dosage: UNK
  4. ADVIL LIQUI-GELS [Concomitant]
     Dosage: UNK
  5. BENADRYL [Concomitant]
     Dosage: UNK
  6. FLONASE [Concomitant]
     Dosage: UNK

REACTIONS (1)
  - TONGUE BLISTERING [None]
